FAERS Safety Report 17563499 (Version 1)
Quarter: 2020Q1

REPORT INFORMATION
  Report Type: Spontaneous
  Country: US (occurrence: US)
  Receive Date: 20200320
  Receipt Date: 20200320
  Transmission Date: 20200409
  Serious: No
  Sender: FDA-Public Use
  Company Number: US-LUPIN PHARMACEUTICALS INC.-2020-00281

PATIENT
  Age: 70 Year
  Sex: Female

DRUGS (1)
  1. METRONIDAZOLE TABLETS [Suspect]
     Active Substance: METRONIDAZOLE
     Indication: PRODUCT USED FOR UNKNOWN INDICATION
     Dosage: 1 DOSAGE FORM, BID (500 MG TABLET)
     Route: 061

REACTIONS (2)
  - Wrong technique in product usage process [Unknown]
  - Off label use [Unknown]
